FAERS Safety Report 19397695 (Version 2)
Quarter: 2021Q3

REPORT INFORMATION
  Report Type: Spontaneous
  Country: CA (occurrence: CA)
  Receive Date: 20210610
  Receipt Date: 20210803
  Transmission Date: 20211014
  Serious: Yes (Life-Threatening)
  Sender: FDA-Public Use
  Company Number: CA-BAUSCH-BL-2021-020569

PATIENT
  Age: 2 Year
  Sex: Male

DRUGS (9)
  1. VINCRISTINE [Concomitant]
     Active Substance: VINCRISTINE
     Indication: GLIOMA
     Dosage: 6 CYCLES
  2. DABRAFENIB [Concomitant]
     Active Substance: DABRAFENIB
     Indication: GLIOMA
  3. LOMUSTINE. [Concomitant]
     Active Substance: LOMUSTINE
     Indication: GLIOMA
     Dosage: 6 CYCLES
  4. PROCARBAZINE [Concomitant]
     Active Substance: PROCARBAZINE
     Indication: GLIOMA
     Dosage: 6 CYCLES
  5. DEXAMETHASONE. [Suspect]
     Active Substance: DEXAMETHASONE
     Indication: PRODUCT USED FOR UNKNOWN INDICATION
     Dosage: HIGH DOSE
     Route: 065
  6. VINBLASTINE [Concomitant]
     Active Substance: VINBLASTINE
     Indication: GLIOMA
  7. DABRAFENIB [Concomitant]
     Active Substance: DABRAFENIB
     Dosage: REINTRODUCTION
  8. THIOGUANINE [Concomitant]
     Active Substance: THIOGUANINE
     Indication: GLIOMA
     Dosage: 6 CYCLES
  9. TRAMETINIB [Concomitant]
     Active Substance: TRAMETINIB
     Indication: GLIOMA

REACTIONS (2)
  - Adverse drug reaction [Unknown]
  - Therapy non-responder [Unknown]
